FAERS Safety Report 4835688-4 (Version None)
Quarter: 2005Q4

REPORT INFORMATION
  Report Type: 
  Country: None (occurrence: None)
  Receive Date: 20051123
  Receipt Date: 20050425
  Transmission Date: 20060501
  Serious: No
  Sender: FDA-Public Use
  Company Number: US-BRISTOL-MYERS SQUIBB COMPANY-12946091

PATIENT
  Sex: Female

DRUGS (1)
  1. PROLIXIN [Suspect]
     Dosage: ROUTE: INJ AND ORAL

REACTIONS (2)
  - DRUG WITHDRAWAL SYNDROME [None]
  - MUSCLE TWITCHING [None]
